FAERS Safety Report 9059155 (Version 1)
Quarter: 2013Q1

REPORT INFORMATION
  Report Type: Spontaneous
  Country: US (occurrence: US)
  Receive Date: 20130211
  Receipt Date: 20130211
  Transmission Date: 20140127
  Serious: No
  Sender: FDA-Public Use
  Company Number: US-BRISTOL-MYERS SQUIBB COMPANY-17062324

PATIENT
  Age: 57 Year
  Sex: Male
  Weight: 115.64 kg

DRUGS (3)
  1. ONGLYZA TABS 2.5 MG [Suspect]
     Dosage: INCREASED TO 5MG
  2. METFORMIN HCL [Suspect]
  3. GLYBURIDE [Suspect]

REACTIONS (3)
  - Diabetes mellitus inadequate control [Unknown]
  - Psoriasis [Unknown]
  - Weight increased [Unknown]
